FAERS Safety Report 15010669 (Version 1)
Quarter: 2018Q2

REPORT INFORMATION
  Report Type: Spontaneous
  Country: US (occurrence: US)
  Receive Date: 20180522
  Receipt Date: 20180522
  Transmission Date: 20180711
  Serious: No
  Sender: FDA-Public Use
  Company Number: None

PATIENT
  Age: 40 Year
  Sex: Male
  Weight: 91 kg

DRUGS (2)
  1. CALDOLOR [Suspect]
     Active Substance: IBUPROFEN
     Indication: POSTOPERATIVE ANALGESIA
     Dosage: 800/8 MG/ML; X1 IV (OVER 20 MINUTES)?
     Route: 042
     Dates: start: 20180111
  2. CALDOLOR [Suspect]
     Active Substance: IBUPROFEN
     Indication: INFLAMMATION

REACTIONS (2)
  - Injection site pain [None]
  - Vein disorder [None]

NARRATIVE: CASE EVENT DATE: 20180111
